FAERS Safety Report 7769254-8 (Version None)
Quarter: 2011Q3

REPORT INFORMATION
  Report Type: 
  Country: None (occurrence: None)
  Receive Date: 20110922
  Receipt Date: 20110919
  Transmission Date: 20111222
  Serious: No
  Sender: FDA-Public Use
  Company Number: US-TEVA-301739USA

PATIENT
  Sex: Female
  Weight: 49.94 kg

DRUGS (3)
  1. PLAN B ONE-STEP [Suspect]
     Indication: POST COITAL CONTRACEPTION
     Dosage: 1.5 MILLIGRAM;
     Route: 048
     Dates: start: 20110918, end: 20110918
  2. LAXATIVES [Concomitant]
     Indication: BOWEL MOVEMENT IRREGULARITY
  3. TRAMADOL HCL [Concomitant]
     Indication: MYALGIA

REACTIONS (1)
  - HEADACHE [None]
